FAERS Safety Report 5680047-8 (Version None)
Quarter: 2008Q1

REPORT INFORMATION
  Report Type: 
  Country: None (occurrence: None)
  Receive Date: 20080325
  Receipt Date: 20080325
  Transmission Date: 20080703
  Serious: Yes (Life-Threatening, Hospitalization)
  Sender: FDA-Public Use
  Company Number: None

PATIENT
  Age: 69 Year
  Sex: Female
  Weight: 67.586 kg

DRUGS (1)
  1. DILANTIN [Suspect]
     Indication: BRAIN NEOPLASM
     Dosage: 100MILLOGRAM 3 TIMES DAILY
     Dates: start: 20060831, end: 20060920

REACTIONS (14)
  - CARDIAC DISORDER [None]
  - COMA [None]
  - FATIGUE [None]
  - FEELING ABNORMAL [None]
  - GAIT DISTURBANCE [None]
  - ILL-DEFINED DISORDER [None]
  - ONYCHOMADESIS [None]
  - ORAL DISORDER [None]
  - RESPIRATORY DISORDER [None]
  - SKIN DISORDER [None]
  - SKIN EXFOLIATION [None]
  - STEVENS-JOHNSON SYNDROME [None]
  - VISUAL DISTURBANCE [None]
  - WEIGHT DECREASED [None]
